FAERS Safety Report 10241022 (Version 2)
Quarter: 2014Q2

REPORT INFORMATION
  Report Type: Spontaneous
  Country: DE (occurrence: DE)
  Receive Date: 20140617
  Receipt Date: 20140617
  Transmission Date: 20141212
  Serious: Yes (Hospitalization, Other)
  Sender: FDA-Public Use
  Company Number: DE-ASTELLAS-2014EU004943

PATIENT
  Age: 0 Day
  Sex: Male

DRUGS (5)
  1. MODIGRAF [Suspect]
     Indication: HEART TRANSPLANT
     Route: 048
     Dates: start: 20130501
  2. EVEROLIMUS [Concomitant]
     Indication: HEART TRANSPLANT
     Dosage: 0.375 MG, TWICE DAILY
     Route: 048
     Dates: start: 20121118
  3. PREDNISONE [Concomitant]
     Indication: PRODUCT USED FOR UNKNOWN INDICATION
     Dosage: UNK UNK, UNKNOWN FREQ.
     Route: 065
  4. ENALAPRIL [Concomitant]
     Indication: HYPERTENSION
     Route: 048
     Dates: start: 20121118
  5. VALPROAT [Concomitant]
     Indication: CEREBRAL PALSY
     Route: 048
     Dates: start: 20130401

REACTIONS (6)
  - Blood alkaline phosphatase increased [Unknown]
  - Anaemia [Unknown]
  - Neutropenia [Unknown]
  - Failure to thrive [Unknown]
  - Decreased appetite [Unknown]
  - Reticulocyte count decreased [Unknown]
